FAERS Safety Report 5024180-2 (Version None)
Quarter: 2006Q2

REPORT INFORMATION
  Report Type: 
  Country: None (occurrence: None)
  Receive Date: 20060607
  Receipt Date: 20060522
  Transmission Date: 20061013
  Serious: Yes (Hospitalization)
  Sender: FDA-Public Use
  Company Number: 225760

PATIENT
  Age: 61 Year
  Sex: Male

DRUGS (3)
  1. AVASTIN [Suspect]
     Indication: COLORECTAL CANCER
     Dosage: 600 MG, QD, INTRAVENOUS
     Route: 042
     Dates: start: 20060116, end: 20060501
  2. CAPECITABINE (CAPECITABINE) [Suspect]
     Indication: COLORECTAL CANCER
     Dosage: 4000 MG, QD, ORAL
     Route: 048
     Dates: start: 20060116, end: 20060514
  3. OXALIPLATIN (OXALIPLATIN) [Suspect]
     Indication: COLORECTAL CANCER
     Dosage: 250 MG, QD, INTRAVENOUS
     Route: 042
     Dates: start: 20060116, end: 20060501

REACTIONS (2)
  - MALAISE [None]
  - RENAL FAILURE [None]
